FAERS Safety Report 6166490-1 (Version None)
Quarter: 2009Q2

REPORT INFORMATION
  Report Type: 
  Country: None (occurrence: None)
  Receive Date: 20090424
  Receipt Date: 20090415
  Transmission Date: 20091009
  Serious: Yes (Hospitalization)
  Sender: FDA-Public Use
  Company Number: FR-ASTRAZENECA-2009CG00739

PATIENT
  Age: 839 Month
  Sex: Male

DRUGS (2)
  1. CASODEX [Suspect]
     Indication: PROSTATE CANCER
     Route: 048
     Dates: start: 20071108, end: 20071208
  2. DECAPEPTYL [Suspect]
     Indication: PROSTATE CANCER
     Route: 030
     Dates: start: 20071108, end: 20080821

REACTIONS (3)
  - ARTHRALGIA [None]
  - OEDEMA [None]
  - OSTEOPENIA [None]
